FAERS Safety Report 9664622 (Version 2)
Quarter: 2014Q2

REPORT INFORMATION
  Report Type: Spontaneous
  Country: US (occurrence: US)
  Receive Date: 20131101
  Receipt Date: 20140521
  Transmission Date: 20141212
  Serious: Yes (Hospitalization, Other)
  Sender: FDA-Public Use
  Company Number: US-B.I. PHARMACEUTICALS,INC./RIDGEFIELD-2013-BI-34731BP

PATIENT
  Age: 75 Year
  Sex: Female
  Weight: 61.23 kg

DRUGS (14)
  1. PRADAXA [Suspect]
     Indication: ATRIAL FIBRILLATION
     Dosage: 300 MG
     Route: 048
     Dates: start: 20120628, end: 20121221
  2. ASPIRIN [Concomitant]
     Dosage: 81 MG
     Route: 048
  3. PAROXETINE [Concomitant]
     Dosage: 40 MG
     Route: 048
     Dates: start: 2008, end: 2013
  4. PREVACID [Concomitant]
     Dosage: 30 MG
     Route: 048
  5. HYDROCHLOROTHIAZIDE-TRIAMTERENE [Concomitant]
     Route: 048
     Dates: start: 2005, end: 2013
  6. MULTIVITAMIN [Concomitant]
     Route: 048
  7. CARVEDILOL [Concomitant]
     Dosage: 12.5 MG
     Route: 048
     Dates: start: 2008
  8. POTASSIUM CHLORIDE [Concomitant]
     Dosage: 60 MEQ
     Route: 048
  9. DIGOXIN [Concomitant]
     Dosage: 125 MCG
     Route: 048
  10. DILTIAZEM [Concomitant]
     Dosage: 120 MG
     Route: 048
     Dates: start: 2005, end: 2013
  11. FISH OIL [Concomitant]
     Dosage: 2000 MG
     Route: 048
  12. DYAZIDE [Concomitant]
     Route: 048
  13. ICAPS [Concomitant]
     Route: 048
  14. CALCIUM 600+ D [Concomitant]
     Route: 048

REACTIONS (4)
  - Subdural haematoma [Unknown]
  - Fall [Unknown]
  - Head injury [Unknown]
  - Coagulopathy [Unknown]
